FAERS Safety Report 10175780 (Version 3)
Quarter: 2014Q4

REPORT INFORMATION
  Report Type: Spontaneous
  Country: JP (occurrence: JP)
  Receive Date: 20140516
  Receipt Date: 20141003
  Transmission Date: 20150528
  Serious: Yes (Death, Hospitalization, Other)
  Sender: FDA-Public Use
  Company Number: JP-009507513-1405JPN006249

PATIENT
  Age: 69 Year
  Sex: Female

DRUGS (7)
  1. LASIX [Concomitant]
     Active Substance: FUROSEMIDE
     Dosage: UNK
     Dates: start: 20140105, end: 20140305
  2. WARFARIN POTASSIUM [Suspect]
     Active Substance: WARFARIN POTASSIUM
     Indication: EMBOLISM
     Dosage: 2.5 MG, QD
     Route: 048
     Dates: start: 20140105, end: 20140305
  3. BASEN [Concomitant]
     Active Substance: VOGLIBOSE
     Dosage: UNK
     Dates: start: 20140105, end: 20140305
  4. OLMETEC [Concomitant]
     Active Substance: OLMESARTAN MEDOXOMIL
     Dosage: UNK
     Route: 048
     Dates: start: 20140105, end: 20140305
  5. FLUITRAN [Concomitant]
     Active Substance: TRICHLORMETHIAZIDE
     Dosage: UNK
     Dates: start: 20140105, end: 20140305
  6. GLACTIV [Suspect]
     Active Substance: SITAGLIPTIN
     Indication: TYPE 2 DIABETES MELLITUS
     Dosage: 50 MG, QD
     Route: 048
     Dates: start: 20140105, end: 20140305
  7. ATELEC [Concomitant]
     Active Substance: CILNIDIPINE
     Dosage: UNK
     Dates: start: 20140105, end: 20140305

REACTIONS (3)
  - Blood pressure decreased [Unknown]
  - Infection [Fatal]
  - Acute kidney injury [Unknown]

NARRATIVE: CASE EVENT DATE: 2014
